FAERS Safety Report 13850925 (Version 3)
Quarter: 2017Q4

REPORT INFORMATION
  Report Type: Report from Study
  Country: RU (occurrence: RU)
  Receive Date: 20170809
  Receipt Date: 20171023
  Transmission Date: 20180320
  Serious: Yes (Other)
  Sender: FDA-Public Use
  Company Number: RU-BEH-2017082760

PATIENT
  Age: 34 Year
  Sex: Male
  Weight: 68.8 kg

DRUGS (5)
  1. PRIVIGEN [Suspect]
     Active Substance: HUMAN IMMUNOGLOBULIN G
     Dosage: 27.5 G, SINGLE; 2.2ML/KG/H
     Route: 042
     Dates: start: 20170525
  2. PRIVIGEN [Suspect]
     Active Substance: HUMAN IMMUNOGLOBULIN G
     Dosage: 28.05 G, SINGLE; 2ML/KG/H
     Route: 042
     Dates: start: 20170615
  3. PRIVIGEN [Suspect]
     Active Substance: HUMAN IMMUNOGLOBULIN G
     Indication: PRIMARY IMMUNODEFICIENCY SYNDROME
     Dosage: 28.4 G, SINGLE; 2.04 ML/KG/H
     Route: 042
     Dates: start: 20170727
  4. PRIVIGEN [Suspect]
     Active Substance: HUMAN IMMUNOGLOBULIN G
     Indication: HYPOGAMMAGLOBULINAEMIA
     Dosage: UNK
     Route: 042
  5. PRIVIGEN [Suspect]
     Active Substance: HUMAN IMMUNOGLOBULIN G
     Dosage: 28.7 G, SINGLE; 2.7ML/KG/H
     Route: 042
     Dates: start: 20170706

REACTIONS (1)
  - Leukopenia [Not Recovered/Not Resolved]

NARRATIVE: CASE EVENT DATE: 20170728
